FAERS Safety Report 24134780 (Version 1)
Quarter: 2024Q3

REPORT INFORMATION
  Report Type: Spontaneous
  Country: ZA (occurrence: None)
  Receive Date: 20240725
  Receipt Date: 20240725
  Transmission Date: 20241017
  Serious: Yes (Hospitalization)
  Sender: ASTRAZENECA
  Company Number: 2024A163773

PATIENT
  Age: 77 Year
  Sex: Female

DRUGS (8)
  1. DAPAGLIFLOZIN PROPANEDIOL [Suspect]
     Active Substance: DAPAGLIFLOZIN PROPANEDIOL
     Dosage: UNKNOWN UNKNOWN
     Route: 048
  2. CIFRAN [Concomitant]
  3. APIXABAN [Concomitant]
     Active Substance: APIXABAN
  4. TORSEMIDE [Concomitant]
     Active Substance: TORSEMIDE
  5. KANTREXIL [Concomitant]
  6. LACTOBACILLUS REUTERI [Concomitant]
     Active Substance: LACTOBACILLUS REUTERI
  7. STOPAYNE [Concomitant]
  8. EUTHYROX [Concomitant]
     Active Substance: LEVOTHYROXINE SODIUM

REACTIONS (2)
  - Pyrexia [Unknown]
  - Diarrhoea [Unknown]
